FAERS Safety Report 8210455-2 (Version None)
Quarter: 2012Q1

REPORT INFORMATION
  Report Type: 
  Country: None (occurrence: None)
  Receive Date: 20120314
  Receipt Date: 20120130
  Transmission Date: 20120608
  Serious: No
  Sender: FDA-Public Use
  Company Number: US-ASTRAZENECA-2012SE06454

PATIENT

DRUGS (1)
  1. METOPROLOL SUCCINATE [Suspect]
     Indication: TACHYCARDIA
     Route: 048

REACTIONS (2)
  - BREAST DISCHARGE [None]
  - RETRACTED NIPPLE [None]
